FAERS Safety Report 23805564 (Version 1)
Quarter: 2024Q2

REPORT INFORMATION
  Report Type: Spontaneous
  Country: JP (occurrence: JP)
  Receive Date: 20240502
  Receipt Date: 20240502
  Transmission Date: 20240715
  Serious: No
  Sender: FDA-Public Use
  Company Number: JP-MSD-M2024-16940

PATIENT
  Age: 72 Year
  Sex: Female

DRUGS (2)
  1. LAGEVRIO [Suspect]
     Active Substance: MOLNUPIRAVIR
     Indication: COVID-19 treatment
     Dosage: 200 MILLIGRAM, BID
     Route: 048
  2. LAGEVRIO [Suspect]
     Active Substance: MOLNUPIRAVIR
     Dosage: 800 MILLIGRAM, BID
     Route: 048

REACTIONS (1)
  - Accidental underdose [Unknown]
